FAERS Safety Report 9408656 (Version 1)
Quarter: 2013Q3

REPORT INFORMATION
  Report Type: Spontaneous
  Country: US (occurrence: None)
  Receive Date: 20130716
  Receipt Date: 20130716
  Transmission Date: 20140515
  Serious: Yes (Other)
  Sender: FDA-Public Use
  Company Number: CABO-13002916

PATIENT
  Age: 46 Year
  Sex: Male
  Weight: 87.5 kg

DRUGS (9)
  1. COMETRIQ (CABOZANTINIB) CAPSULE [Suspect]
     Indication: THYROID CANCER
     Route: 048
     Dates: start: 20130601
  2. SYNTHROID (LEVOTHYROXINE SODIUM) [Concomitant]
  3. CALCITRIOL (CALCITRIOL) [Concomitant]
  4. MAXZIDE (HYDROCHLOROTHIAZIDE, TRIAMTERENE) [Concomitant]
  5. VICODIN (HYDROCODONE BITARTRATE, PARACETAMOL) [Concomitant]
  6. POTASSIUM (POTASSIUM) [Concomitant]
  7. ZANTAC (RANITIDINE HYDROCHLORIDE) [Concomitant]
  8. ZOMETA (ZOLEDRONIC ACID) [Concomitant]
  9. PANTOPRAZOLE (PANTOPRAZOLE) [Concomitant]

REACTIONS (8)
  - Syncope [None]
  - Dyspnoea [None]
  - Hyperhidrosis [None]
  - Skin ulcer [None]
  - Stomatitis [None]
  - Nausea [None]
  - Blister [None]
  - Pain in extremity [None]
